FAERS Safety Report 7986698-X (Version None)
Quarter: 2011Q4

REPORT INFORMATION
  Report Type: 
  Country: None (occurrence: None)
  Receive Date: 20111216
  Receipt Date: 20110812
  Transmission Date: 20120403
  Serious: No
  Sender: FDA-Public Use
  Company Number: US-BRISTOL-MYERS SQUIBB COMPANY-15968936

PATIENT
  Age: 17 Year
  Sex: Male
  Weight: 109 kg

DRUGS (1)
  1. ABILIFY [Suspect]
     Indication: BIPOLAR DISORDER
     Dates: start: 20090101

REACTIONS (2)
  - BLEPHAROSPASM [None]
  - TIC [None]
